FAERS Safety Report 5826146-9 (Version None)
Quarter: 2008Q3

REPORT INFORMATION
  Report Type: 
  Country: None (occurrence: None)
  Receive Date: 20080723
  Receipt Date: 20080715
  Transmission Date: 20090109
  Serious: Yes (Disabling, Other)
  Sender: FDA-Public Use
  Company Number: 100#03#2008-03665

PATIENT
  Age: 10 Year
  Sex: Female

DRUGS (1)
  1. DESMOPRESSIN ACETATE [Suspect]
     Indication: ENURESIS
     Dosage: 120 ?G ORAL
     Route: 048
     Dates: start: 20060501

REACTIONS (1)
  - ALOPECIA [None]
